FAERS Safety Report 7903810-9 (Version None)
Quarter: 2011Q4

REPORT INFORMATION
  Report Type: 
  Country: None (occurrence: None)
  Receive Date: 20111109
  Receipt Date: 20111109
  Transmission Date: 20120403
  Serious: Yes (Death, Hospitalization)
  Sender: FDA-Public Use
  Company Number: TW-ABBOTT-11P-153-0872296-00

PATIENT
  Sex: Male

DRUGS (1)
  1. HUMIRA [Suspect]
     Indication: COLITIS ULCERATIVE
     Dosage: 2 SHOTS
     Route: 058
     Dates: start: 20111018

REACTIONS (5)
  - PNEUMONIA [None]
  - DYSPNOEA [None]
  - OFF LABEL USE [None]
  - MULTI-ORGAN FAILURE [None]
  - SEPSIS [None]
